FAERS Safety Report 9111441 (Version 1)
Quarter: 2013Q1

REPORT INFORMATION
  Report Type: Spontaneous
  Country: US (occurrence: US)
  Receive Date: 20130219
  Receipt Date: 20130219
  Transmission Date: 20140127
  Serious: No
  Sender: FDA-Public Use
  Company Number: US-BRISTOL-MYERS SQUIBB COMPANY-17224155

PATIENT
  Age: 34 Year
  Sex: Female
  Weight: 75.73 kg

DRUGS (13)
  1. ABATACEPT SUBQ INJECTION 125MG/ML [Suspect]
     Indication: RHEUMATOID ARTHRITIS
     Route: 058
  2. CLINDAMYCIN [Concomitant]
  3. ATENOLOL [Concomitant]
  4. CARISOPRODOL [Concomitant]
  5. CYMBALTA [Concomitant]
  6. IBUPROFEN [Concomitant]
  7. LORATADINE [Concomitant]
  8. LORAZEPAM [Concomitant]
  9. OMEPRAZOLE [Concomitant]
  10. ORENCIA [Concomitant]
     Dosage: INFUSIONS
  11. ORPHENADRINE [Concomitant]
  12. OXYCODONE [Concomitant]
  13. PREDNISONE [Concomitant]

REACTIONS (4)
  - Tooth disorder [Unknown]
  - Diarrhoea [Unknown]
  - Hyperhidrosis [Unknown]
  - Dyspepsia [Unknown]
